FAERS Safety Report 25767554 (Version 5)
Quarter: 2025Q4

REPORT INFORMATION
  Report Type: Spontaneous
  Country: US (occurrence: US)
  Receive Date: 20250905
  Receipt Date: 20251203
  Transmission Date: 20260117
  Serious: Yes (Hospitalization, Other)
  Sender: VERTEX
  Company Number: US-VERTEX PHARMACEUTICALS-2025-013437

PATIENT
  Age: 21 Year
  Sex: Male

DRUGS (3)
  1. TRIKAFTA [Suspect]
     Active Substance: ELEXACAFTOR\IVACAFTOR\TEZACAFTOR
     Indication: Cystic fibrosis
     Dosage: TWO TABS IN AM AND TAB IN PM
     Dates: start: 202001, end: 20250725
  2. TRIKAFTA [Suspect]
     Active Substance: ELEXACAFTOR\IVACAFTOR\TEZACAFTOR
     Dosage: RESTARTED AT ONCE DAILY
     Dates: start: 20250831
  3. TRIKAFTA [Suspect]
     Active Substance: ELEXACAFTOR\IVACAFTOR\TEZACAFTOR
     Dosage: INCREASED TO TWICE DAILY
     Dates: start: 20251121

REACTIONS (6)
  - Alanine aminotransferase increased [Recovered/Resolved]
  - Bilirubin conjugated increased [Recovered/Resolved]
  - Aspartate aminotransferase increased [Recovered/Resolved]
  - Blood glucose increased [Unknown]
  - Staphylococcus test positive [Recovered/Resolved]
  - Blood alkaline phosphatase increased [Recovered/Resolved]

NARRATIVE: CASE EVENT DATE: 20250723
